FAERS Safety Report 10053235 (Version 3)
Quarter: 2014Q2

REPORT INFORMATION
  Report Type: Report from Study
  Country: DE (occurrence: DE)
  Receive Date: 20140402
  Receipt Date: 20140609
  Transmission Date: 20141212
  Serious: Yes (Hospitalization)
  Sender: FDA-Public Use
  Company Number: DE-GLAXOSMITHKLINE-B0981649A

PATIENT
  Age: 75 Year
  Sex: Female
  Weight: 110.5 kg

DRUGS (2)
  1. PAZOPANIB [Suspect]
     Indication: ACUTE MYELOID LEUKAEMIA
     Dosage: 800MG PER DAY
     Route: 048
     Dates: start: 20140224, end: 20140327
  2. CANDESARTAN [Concomitant]
     Indication: HYPERTENSION
     Dosage: 8MG PER DAY
     Route: 048

REACTIONS (2)
  - General physical health deterioration [Recovered/Resolved]
  - Pneumonia [Recovered/Resolved]
